FAERS Safety Report 17522084 (Version 1)
Quarter: 2020Q1

REPORT INFORMATION
  Report Type: Spontaneous
  Country: CN (occurrence: CN)
  Receive Date: 20200310
  Receipt Date: 20200310
  Transmission Date: 20200409
  Serious: Yes (Other)
  Sender: FDA-Public Use
  Company Number: ALC2020CN002098

PATIENT
  Age: 55 Year
  Sex: Male
  Weight: 76 kg

DRUGS (1)
  1. ALCAINE [Suspect]
     Active Substance: PROPARACAINE HYDROCHLORIDE
     Indication: ANAESTHESIA
     Dosage: 1 DRP, TID
     Route: 047
     Dates: start: 20200203, end: 20200203

REACTIONS (2)
  - Corneal oedema [Recovered/Resolved]
  - Corneal opacity [Recovered/Resolved]

NARRATIVE: CASE EVENT DATE: 20200203
